FAERS Safety Report 4450080-2 (Version None)
Quarter: 2004Q3

REPORT INFORMATION
  Report Type: 
  Country: None (occurrence: None)
  Receive Date: 20040915
  Receipt Date: 20040826
  Transmission Date: 20050211
  Serious: Yes (Hospitalization)
  Sender: FDA-Public Use
  Company Number: DE-ROCHE-378613

PATIENT
  Age: 55 Year
  Sex: Male
  Weight: 83 kg

DRUGS (10)
  1. CAPECITABINE [Suspect]
     Indication: GASTRIC CANCER
     Dosage: INTERMITTENT TREATMENT - TWO WEEKS OF THERAPY FOLLOWED BY ONE WEEK REST.
     Route: 048
     Dates: start: 20040407
  2. CISPLATIN [Suspect]
     Indication: GASTRIC CANCER
     Route: 042
     Dates: start: 20040407
  3. EPOGEN [Suspect]
     Indication: ANAEMIA
     Route: 058
     Dates: start: 20040625
  4. KEVATRIL [Concomitant]
     Route: 042
     Dates: start: 20040402
  5. DEXAMETHASONE [Concomitant]
     Route: 042
     Dates: start: 20040402
  6. L-THYROXINE [Concomitant]
     Dosage: MORNE.
     Route: 048
  7. PANTOPRAZOLE SODIUM [Concomitant]
     Dosage: MORNE.
     Route: 048
  8. BELOC-ZOK [Concomitant]
     Dosage: MORNE.
     Route: 048
  9. NOVALGIN [Concomitant]
     Route: 048
  10. METOCLOPRAMIDE HYDROCHLORIDE [Concomitant]
     Route: 048

REACTIONS (2)
  - ANAEMIA [None]
  - PROTHROMBIN TIME PROLONGED [None]
